FAERS Safety Report 25100812 (Version 1)
Quarter: 2025Q1

REPORT INFORMATION
  Report Type: Spontaneous
  Country: US (occurrence: US)
  Receive Date: 20250320
  Receipt Date: 20250320
  Transmission Date: 20250409
  Serious: No
  Sender: COVIS PHARMA GMBH
  Company Number: US-AMAGP-2025COV00243

PATIENT
  Sex: Female

DRUGS (1)
  1. ALVESCO [Suspect]
     Active Substance: CICLESONIDE
     Route: 065

REACTIONS (3)
  - Dyspnoea [Recovered/Resolved]
  - Incorrect dose administered by device [Unknown]
  - Condition aggravated [Unknown]
